FAERS Safety Report 8321187-4 (Version None)
Quarter: 2012Q2

REPORT INFORMATION
  Report Type: 
  Country: None (occurrence: None)
  Receive Date: 20120430
  Receipt Date: 20120423
  Transmission Date: 20120825
  Serious: Yes (Hospitalization, Other)
  Sender: FDA-Public Use
  Company Number: BR-SANOFI-AVENTIS-2012SA028520

PATIENT
  Age: 50 Year
  Sex: Female
  Weight: 57 kg

DRUGS (8)
  1. PARACETAMOL [Concomitant]
     Indication: PAIN
     Route: 048
  2. AUTOPEN 24 [Suspect]
     Indication: DEVICE THERAPY
  3. AMITRIPTYLINE HCL [Concomitant]
     Indication: STRESS
     Route: 048
  4. AMITRIPTYLINE HCL [Concomitant]
     Indication: DEPRESSION
     Route: 048
  5. RISPERIDONE [Concomitant]
     Route: 048
  6. REGULAR INSULIN [Concomitant]
  7. LANTUS [Suspect]
     Route: 058
     Dates: start: 20070101
  8. SERTRALINE HYDROCHLORIDE [Concomitant]
     Dosage: UNSPECIFIED DOSE AT 10 A.M.
     Route: 048

REACTIONS (5)
  - DIABETIC KETOACIDOSIS [None]
  - CATARACT [None]
  - BENIGN MUSCLE NEOPLASM [None]
  - EYE HAEMORRHAGE [None]
  - BLOOD GLUCOSE INCREASED [None]
